FAERS Safety Report 4682957-7 (Version None)
Quarter: 2005Q2

REPORT INFORMATION
  Report Type: 
  Country: None (occurrence: None)
  Receive Date: 20050602
  Receipt Date: 20050315
  Transmission Date: 20051028
  Serious: No
  Sender: FDA-Public Use
  Company Number: USA050393291

PATIENT
  Age: 61 Year
  Sex: Female

DRUGS (8)
  1. CYMBALTA [Suspect]
     Indication: DEPRESSION
     Dosage: 60 MG/2 DAY
  2. FORTEO [Concomitant]
  3. ZOMETA [Concomitant]
  4. NEXIUM [Concomitant]
  5. SALAGEN (PRILOCARPINE HYDROCHLORIDE) [Concomitant]
  6. NEURONTIN (GABAPENTIN PFIZER) [Concomitant]
  7. WELLBUTRIN [Concomitant]
  8. HORMONE REPLACEMENT THERAPY [Concomitant]

REACTIONS (4)
  - ARTHRALGIA [None]
  - DRUG INEFFECTIVE [None]
  - PRESCRIBED OVERDOSE [None]
  - TREMOR [None]
